FAERS Safety Report 6649052-9 (Version None)
Quarter: 2010Q1

REPORT INFORMATION
  Report Type: 
  Country: None (occurrence: None)
  Receive Date: 20100324
  Receipt Date: 20100312
  Transmission Date: 20100710
  Serious: Yes (Hospitalization)
  Sender: FDA-Public Use
  Company Number: TR-PFIZER INC-2010035755

PATIENT
  Age: 47 Year
  Sex: Male
  Weight: 83 kg

DRUGS (5)
  1. SERTRALINE HCL [Suspect]
     Indication: MAJOR DEPRESSION
     Dosage: UNK
  2. MIVACURIUM [Suspect]
     Indication: ENDOTRACHEAL INTUBATION
     Dosage: 17 MG, SINGLE
  3. PROPOFOL [Concomitant]
     Indication: INDUCTION OF ANAESTHESIA
     Dosage: 200 MG, UNK
  4. ISOFLURANE [Concomitant]
     Indication: ANAESTHESIA
  5. OXYGEN [Concomitant]

REACTIONS (3)
  - APNOEA [None]
  - DRUG EFFECT PROLONGED [None]
  - PSEUDOCHOLINESTERASE DEFICIENCY [None]
